FAERS Safety Report 9453027 (Version 1)
Quarter: 2013Q3

REPORT INFORMATION
  Report Type: Spontaneous
  Country: JP (occurrence: JP)
  Receive Date: 20130812
  Receipt Date: 20130812
  Transmission Date: 20140515
  Serious: Yes (Death, Hospitalization, Other)
  Sender: FDA-Public Use
  Company Number: JP-CUBIST PHARMACEUTICAL, INC.-2012S1000759

PATIENT
  Age: 79 Year
  Sex: Male
  Weight: 57 kg

DRUGS (8)
  1. CUBICIN [Suspect]
     Indication: INFECTIVE SPONDYLITIS
     Dosage: 342 MG, QD
     Route: 041
     Dates: start: 20120818, end: 20120908
  2. CUBICIN [Suspect]
     Dosage: 6 MG/KG, QD
     Route: 041
     Dates: start: 20120818, end: 20120908
  3. GENINAX [Concomitant]
     Indication: INFECTIVE SPONDYLITIS
     Dosage: 2 DF, QD
     Route: 048
     Dates: start: 20120901, end: 20100904
  4. CRAVIT [Concomitant]
     Dosage: UNK
     Route: 051
  5. ISOTONIC SODIUM CHLORIDE SOLUTION [Concomitant]
     Dosage: 100 ML, SINGLE
     Route: 041
     Dates: start: 20120818, end: 20120908
  6. NEO-MINOPHAGEN C [Concomitant]
     Indication: HEPATIC FUNCTION ABNORMAL
     Dosage: 2 DF, QD
     Route: 041
     Dates: start: 20120831, end: 20120904
  7. LOXONIN [Concomitant]
     Indication: INFECTIVE SPONDYLITIS
     Dosage: 3 DF, QD
     Route: 048
     Dates: start: 20120811, end: 20120908
  8. MUCOSTA [Concomitant]
     Indication: GASTRITIS
     Dosage: 3 DF, QD
     Dates: start: 20120811, end: 20120908

REACTIONS (4)
  - Lung disorder [Recovered/Resolved]
  - Pyrexia [Recovered/Resolved]
  - Systemic inflammatory response syndrome [Unknown]
  - Acute respiratory distress syndrome [Unknown]
